FAERS Safety Report 9733707 (Version 1)
Quarter: 2013Q4

REPORT INFORMATION
  Report Type: Spontaneous
  Country: GB (occurrence: GB)
  Receive Date: 20131205
  Receipt Date: 20131205
  Transmission Date: 20140711
  Serious: Yes (Other)
  Sender: FDA-Public Use
  Company Number: GB-TEVA-448677ISR

PATIENT
  Age: 61 Year
  Sex: Female
  Weight: 76.2 kg

DRUGS (4)
  1. RAMIPRIL [Suspect]
     Indication: HYPERTENSION
     Route: 048
     Dates: start: 201207
  2. AMLODIPINE BESILATE [Concomitant]
  3. ASPIRIN [Concomitant]
  4. DIPYRIDAMOLE [Concomitant]

REACTIONS (5)
  - Abdominal pain [Not Recovered/Not Resolved]
  - Pain [Not Recovered/Not Resolved]
  - Cough [Not Recovered/Not Resolved]
  - Dysstasia [Unknown]
  - Quality of life decreased [Unknown]
